FAERS Safety Report 25837814 (Version 1)
Quarter: 2025Q3

REPORT INFORMATION
  Report Type: Spontaneous
  Country: EU (occurrence: EU)
  Receive Date: 20250923
  Receipt Date: 20250923
  Transmission Date: 20251020
  Serious: Yes (Other)
  Sender: UCB
  Company Number: EU-UCBSA-2024044224

PATIENT
  Age: 35 Year
  Sex: Male

DRUGS (14)
  1. LEVETIRACETAM [Suspect]
     Active Substance: LEVETIRACETAM
     Indication: Epilepsy
  2. LEVETIRACETAM [Suspect]
     Active Substance: LEVETIRACETAM
     Indication: Haemangioma
     Dosage: 500 MILLIGRAM, 2X/DAY (BID)
  3. LEVETIRACETAM [Suspect]
     Active Substance: LEVETIRACETAM
     Indication: Off label use
  4. LEVETIRACETAM [Suspect]
     Active Substance: LEVETIRACETAM
     Indication: Seizure
  5. VALPROATE [Suspect]
     Active Substance: VALPROIC ACID
     Indication: Epilepsy
  6. VALPROATE [Suspect]
     Active Substance: VALPROIC ACID
     Indication: Haemangioma
  7. VALPROATE [Suspect]
     Active Substance: VALPROIC ACID
     Indication: Seizure
  8. PHENYTOIN [Suspect]
     Active Substance: PHENYTOIN
     Indication: Epilepsy
  9. PHENYTOIN [Suspect]
     Active Substance: PHENYTOIN
     Indication: Haemangioma
  10. PHENYTOIN [Suspect]
     Active Substance: PHENYTOIN
     Indication: Seizure
  11. ZONISAMIDE [Suspect]
     Active Substance: ZONISAMIDE
     Indication: Seizure
  12. PREDNISONE [Concomitant]
     Active Substance: PREDNISONE
     Indication: Epilepsy
     Dosage: 30 MILLIGRAM, 2X/DAY (BID)
     Route: 048
  13. PREDNISONE [Concomitant]
     Active Substance: PREDNISONE
     Indication: Haemangioma
  14. PREDNISONE [Concomitant]
     Active Substance: PREDNISONE
     Indication: Drug reaction with eosinophilia and systemic symptoms

REACTIONS (4)
  - Drug reaction with eosinophilia and systemic symptoms [Recovered/Resolved]
  - Condition aggravated [Recovered/Resolved]
  - Cross sensitivity reaction [Recovered/Resolved]
  - Off label use [Unknown]
